FAERS Safety Report 9128164 (Version 1)
Quarter: 2013Q1

REPORT INFORMATION
  Report Type: Spontaneous
  Country: US (occurrence: US)
  Receive Date: 20130125
  Receipt Date: 20130125
  Transmission Date: 20140127
  Serious: Yes (Other)
  Sender: FDA-Public Use
  Company Number: US-SANOFI-AVENTIS-2013SA003658

PATIENT
  Age: 63 Year
  Sex: Female

DRUGS (4)
  1. AMARYL [Suspect]
  2. LANTUS [Suspect]
     Indication: TYPE 2 DIABETES MELLITUS
     Dosage: DOSE:30 UNIT(S)
     Route: 051
     Dates: start: 2012
  3. ACTOS /USA/ [Suspect]
  4. NOVOLOG [Concomitant]
     Dosage: 70/30 55 UNITS

REACTIONS (4)
  - Stress [Unknown]
  - Glycosylated haemoglobin increased [Unknown]
  - Insulin resistance [Unknown]
  - Blood glucose increased [Unknown]
